FAERS Safety Report 20763169 (Version 4)
Quarter: 2025Q4

REPORT INFORMATION
  Report Type: Spontaneous
  Country: US (occurrence: US)
  Receive Date: 20220428
  Receipt Date: 20251128
  Transmission Date: 20260118
  Serious: No
  Sender: PFIZER
  Company Number: US-PFIZER INC-2021815736

PATIENT
  Age: 41 Year
  Sex: Male

DRUGS (2)
  1. BENEFIX [Suspect]
     Active Substance: COAGULATION FACTOR IX RECOMBINANT HUMAN\ISOPROPYL ALCOHOL
     Indication: Coagulation factor IX level decreased
     Dosage: 8000 IU, AS NEEDED (EVERY 12-24HRS AS NEEDED AS DIRECTED BY THE HTC)
     Route: 042
  2. BENEFIX [Suspect]
     Active Substance: COAGULATION FACTOR IX RECOMBINANT HUMAN\ISOPROPYL ALCOHOL
     Indication: Haemorrhage
     Dosage: 8,300 UNITS +/- 10% SLOW IV PUSH AS NEEDED EVERY 24 HRS
     Route: 042

REACTIONS (1)
  - Dental care [Unknown]
